FAERS Safety Report 13493802 (Version 1)
Quarter: 2017Q2

REPORT INFORMATION
  Report Type: Spontaneous
  Country: US (occurrence: US)
  Receive Date: 20170427
  Receipt Date: 20170427
  Transmission Date: 20170830
  Serious: No
  Sender: FDA-Public Use
  Company Number: US-SHIRE-US201709616

PATIENT
  Age: 59 Year
  Sex: Female
  Weight: 77.98 kg

DRUGS (1)
  1. XIIDRA [Suspect]
     Active Substance: LIFITEGRAST
     Indication: DRY EYE
     Dosage: 1 GTT (BOTH EYES), 2X/DAY:BID
     Route: 047
     Dates: start: 201612, end: 20170415

REACTIONS (1)
  - Instillation site reaction [Recovering/Resolving]

NARRATIVE: CASE EVENT DATE: 201612
